FAERS Safety Report 11031210 (Version 1)
Quarter: 2015Q2

REPORT INFORMATION
  Report Type: Spontaneous
  Country: US (occurrence: US)
  Receive Date: 20150415
  Receipt Date: 20150415
  Transmission Date: 20150821
  Serious: No
  Sender: FDA-Public Use
  Company Number: US-ASTRAZENECA-2014SE47653

PATIENT
  Sex: Female

DRUGS (5)
  1. CLARITIN [Concomitant]
     Active Substance: LORATADINE
     Dosage: UNKNOWN
  2. NO DRUG NAME [Concomitant]
     Dosage: UNKNOWN
  3. SYMBICORT [Concomitant]
     Active Substance: BUDESONIDE\FORMOTEROL FUMARATE DIHYDRATE
     Dosage: UNKNOWN
  4. ACLIDINIUM BROMIDE [Concomitant]
     Active Substance: ACLIDINIUM BROMIDE
  5. PRILOSEC OTC [Suspect]
     Active Substance: OMEPRAZOLE MAGNESIUM
     Indication: COUGH
     Route: 048
     Dates: start: 20140301

REACTIONS (5)
  - Musculoskeletal pain [Recovered/Resolved]
  - Neck pain [Recovered/Resolved]
  - Spinal pain [Recovered/Resolved]
  - Pain in extremity [Recovered/Resolved]
  - Chest pain [Recovered/Resolved]
